FAERS Safety Report 6832323-0 (Version None)
Quarter: 2010Q3

REPORT INFORMATION
  Report Type: 
  Country: None (occurrence: None)
  Receive Date: 20100712
  Receipt Date: 20100629
  Transmission Date: 20110219
  Serious: Yes (Disabling, Other)
  Sender: FDA-Public Use
  Company Number: US-WATSON-2010-08646

PATIENT
  Age: 44 Year
  Sex: Female

DRUGS (5)
  1. LOW-OGESTREL-21 [Suspect]
     Indication: CONTRACEPTION
     Dosage: UNK
     Route: 065
     Dates: end: 20080901
  2. HYDROXYCUT MAX LIQUID CAPS [Suspect]
     Indication: SUPPLEMENTATION THERAPY
     Dosage: UNK
     Route: 048
  3. GNC PROPERFORMANCE AMP AMPLIFIED MUSCLE IGNITER 4X [Suspect]
     Indication: SUPPLEMENTATION THERAPY
     Dosage: UNK
     Route: 048
  4. PROZAC [Concomitant]
     Indication: DEPRESSION
     Dosage: UNK
     Route: 065
  5. AMBIEN [Concomitant]
     Indication: INSOMNIA
     Dosage: ONE HALF TO ONE TABLET AT BEDTIME
     Route: 065

REACTIONS (9)
  - BLOOD DISORDER [None]
  - CHEST PAIN [None]
  - DEEP VEIN THROMBOSIS [None]
  - DEHYDRATION [None]
  - HEART RATE IRREGULAR [None]
  - INSOMNIA [None]
  - NAUSEA [None]
  - OEDEMA PERIPHERAL [None]
  - PALPITATIONS [None]
